FAERS Safety Report 6347997-0 (Version None)
Quarter: 2009Q3

REPORT INFORMATION
  Report Type: 
  Country: None (occurrence: None)
  Receive Date: 20090910
  Receipt Date: 20090902
  Transmission Date: 20100115
  Serious: Yes (Other)
  Sender: FDA-Public Use
  Company Number: PR-ABBOTT-08P-131-0461691-00

PATIENT
  Sex: Female
  Weight: 69.008 kg

DRUGS (3)
  1. HUMIRA [Suspect]
     Indication: RHEUMATOID ARTHRITIS
     Dosage: 1 PEN EVERY 15 DAYS
     Route: 058
     Dates: start: 20080501
  2. OBSTETRIX MATERNAL [Concomitant]
     Indication: PREGNANCY
     Route: 048
  3. PROTONIX [Concomitant]
     Indication: DYSPEPSIA
     Route: 048

REACTIONS (7)
  - ARTHRALGIA [None]
  - INCORRECT DOSE ADMINISTERED [None]
  - INJECTION SITE EXTRAVASATION [None]
  - INJECTION SITE IRRITATION [None]
  - OEDEMA PERIPHERAL [None]
  - PAIN IN EXTREMITY [None]
  - PRE-ECLAMPSIA [None]
